FAERS Safety Report 25197154 (Version 2)
Quarter: 2025Q3

REPORT INFORMATION
  Report Type: Spontaneous
  Country: EU (occurrence: EU)
  Receive Date: 20250415
  Receipt Date: 20250809
  Transmission Date: 20251021
  Serious: Yes (Other)
  Sender: ALEXION PHARMACEUTICALS
  Company Number: EU-BAYER-2025A042721

PATIENT
  Age: 63 Year
  Sex: Male

DRUGS (6)
  1. ROSUVASTATIN [Interacting]
     Active Substance: ROSUVASTATIN
     Indication: Product used for unknown indication
     Route: 065
  2. DAROLUTAMIDE [Interacting]
     Active Substance: DAROLUTAMIDE
     Dates: start: 20240711, end: 20240718
  3. DOCETAXEL [Suspect]
     Active Substance: DOCETAXEL
     Route: 065
  4. Dironorm [Concomitant]
     Route: 065
  5. TORSEMIDE [Concomitant]
     Active Substance: TORSEMIDE
     Route: 065
  6. INSULIN HUMAN [Concomitant]
     Active Substance: INSULIN HUMAN
     Route: 065

REACTIONS (6)
  - Hepatic enzyme increased [Recovered/Resolved]
  - Diabetes mellitus inadequate control [Unknown]
  - Hepatotoxicity [Unknown]
  - Aspartate aminotransferase increased [Recovered/Resolved]
  - Alanine aminotransferase increased [Recovering/Resolving]
  - Drug interaction [Unknown]

NARRATIVE: CASE EVENT DATE: 20240718
